FAERS Safety Report 20809705 (Version 2)
Quarter: 2022Q2

REPORT INFORMATION
  Report Type: Spontaneous
  Country: US (occurrence: US)
  Receive Date: 20220510
  Receipt Date: 20220512
  Transmission Date: 20220721
  Serious: Yes (Other)
  Sender: FDA-Public Use
  Company Number: US-PFIZER INC-202200658896

PATIENT
  Age: 48 Year
  Sex: Male

DRUGS (1)
  1. METHOTREXATE SODIUM [Suspect]
     Active Substance: METHOTREXATE SODIUM
     Indication: Leukaemia granulocytic
     Dosage: UNK

REACTIONS (2)
  - Haemoglobin decreased [Unknown]
  - Off label use [Unknown]
